FAERS Safety Report 16242599 (Version 1)
Quarter: 2019Q2

REPORT INFORMATION
  Report Type: Spontaneous
  Country: FR (occurrence: FR)
  Receive Date: 20190426
  Receipt Date: 20190426
  Transmission Date: 20190711
  Serious: Yes (Hospitalization)
  Sender: FDA-Public Use
  Company Number: FR-ACCORD-124151

PATIENT
  Age: 76 Year
  Sex: Female
  Weight: 59 kg

DRUGS (1)
  1. SIMVASTATINE ACCORD HEALTHCARE [Suspect]
     Active Substance: SIMVASTATIN
     Indication: DYSLIPIDAEMIA
     Route: 048
     Dates: start: 2016, end: 201810

REACTIONS (3)
  - Dysphagia [Not Recovered/Not Resolved]
  - Hepatitis acute [Recovering/Resolving]
  - Necrotising myositis [Recovering/Resolving]

NARRATIVE: CASE EVENT DATE: 201810
